FAERS Safety Report 9613615 (Version 1)
Quarter: 2013Q4

REPORT INFORMATION
  Report Type: Spontaneous
  Country: IT (occurrence: None)
  Receive Date: 20131008
  Receipt Date: 20131008
  Transmission Date: 20140711
  Serious: Yes (Hospitalization)
  Sender: FDA-Public Use
  Company Number: B0927932A

PATIENT
  Sex: Female

DRUGS (1)
  1. PAROXETINE HYDROCHLORIDE [Suspect]
     Indication: ANXIETY
     Dates: start: 2003

REACTIONS (6)
  - Hypomania [None]
  - Aggression [None]
  - Narcissistic personality disorder [None]
  - Paranoid personality disorder [None]
  - Disinhibition [None]
  - Sexually inappropriate behaviour [None]
